FAERS Safety Report 9677223 (Version 1)
Quarter: 2013Q4

REPORT INFORMATION
  Report Type: Spontaneous
  Country: US (occurrence: None)
  Receive Date: 20131107
  Receipt Date: 20131107
  Transmission Date: 20140711
  Serious: Yes (Other)
  Sender: FDA-Public Use
  Company Number: None

PATIENT
  Age: 55 Year
  Sex: Female
  Weight: 63.05 kg

DRUGS (1)
  1. HYDROXYCHLOROQUINE [Suspect]
     Indication: UNDIFFERENTIATED CONNECTIVE TISSUE DISEASE
     Dosage: 2 PILLS
     Route: 048
     Dates: start: 20121001, end: 20131104

REACTIONS (4)
  - Product quality issue [None]
  - Drug ineffective [None]
  - Pain [None]
  - Oedema [None]
